FAERS Safety Report 13464201 (Version 1)
Quarter: 2017Q2

REPORT INFORMATION
  Report Type: Spontaneous
  Country: US (occurrence: US)
  Receive Date: 20170420
  Receipt Date: 20170420
  Transmission Date: 20170830
  Serious: Yes (Hospitalization, Other)
  Sender: FDA-Public Use
  Company Number: US-ROCHE-722552

PATIENT
  Age: 33 Year
  Sex: Female
  Weight: 64.4 kg

DRUGS (7)
  1. ACCUTANE [Suspect]
     Active Substance: ISOTRETINOIN
     Indication: ACNE
     Route: 048
  2. ACCUTANE [Suspect]
     Active Substance: ISOTRETINOIN
     Route: 048
     Dates: start: 1995, end: 1995
  3. ACCUTANE [Suspect]
     Active Substance: ISOTRETINOIN
     Route: 048
     Dates: start: 1998, end: 1998
  4. ACCUTANE [Suspect]
     Active Substance: ISOTRETINOIN
     Route: 048
     Dates: start: 2000, end: 2000
  5. ACCUTANE [Suspect]
     Active Substance: ISOTRETINOIN
     Route: 048
  6. ACCUTANE [Suspect]
     Active Substance: ISOTRETINOIN
     Route: 048
  7. ACCUTANE [Suspect]
     Active Substance: ISOTRETINOIN
     Route: 048
     Dates: start: 19990819, end: 199910

REACTIONS (3)
  - Colitis ulcerative [Unknown]
  - Inflammatory bowel disease [Unknown]
  - Alopecia [Unknown]

NARRATIVE: CASE EVENT DATE: 1997
